FAERS Safety Report 5587169-0 (Version None)
Quarter: 2008Q1

REPORT INFORMATION
  Report Type: 
  Country: None (occurrence: None)
  Receive Date: 20080110
  Receipt Date: 20080102
  Transmission Date: 20080703
  Serious: Yes (Other)
  Sender: FDA-Public Use
  Company Number: PHBS2008FR00459

PATIENT
  Age: 53 Year
  Sex: Female

DRUGS (3)
  1. CARBAMAZEPINE [Suspect]
     Indication: PETIT MAL EPILEPSY
     Route: 065
  2. ETHOSUXIMIDE [Concomitant]
     Indication: PETIT MAL EPILEPSY
     Dosage: 1500 MG/DAY
  3. VALPROATE SODIUM [Concomitant]
     Indication: PETIT MAL EPILEPSY
     Dosage: 500 MG/DAY

REACTIONS (3)
  - CONFUSIONAL STATE [None]
  - EPILEPSY [None]
  - PETIT MAL EPILEPSY [None]
